FAERS Safety Report 6156545-X (Version None)
Quarter: 2009Q2

REPORT INFORMATION
  Report Type: 
  Country: None (occurrence: None)
  Receive Date: 20090413
  Receipt Date: 20090204
  Transmission Date: 20091009
  Serious: Yes (Hospitalization, Other)
  Sender: FDA-Public Use
  Company Number: OPER20090024

PATIENT
  Sex: Female
  Weight: 6.6 kg

DRUGS (2)
  1. OPANA ER [Suspect]
     Indication: DRUG WITHDRAWAL SYNDROME
     Dosage: TRANSPLACENTAL, VIA BREAST MILK
     Route: 064
     Dates: start: 20080501, end: 20090202
  2. OPANA ER [Suspect]
     Indication: DRUG WITHDRAWAL SYNDROME
     Dosage: TRANSPLACENTAL, VIA BREAST MILK
     Route: 064
     Dates: start: 20090201

REACTIONS (9)
  - AGITATION NEONATAL [None]
  - CRYING [None]
  - DRUG EXPOSURE VIA BREAST MILK [None]
  - DRUG WITHDRAWAL SYNDROME NEONATAL [None]
  - DYSKINESIA NEONATAL [None]
  - MATERNAL DRUGS AFFECTING FOETUS [None]
  - NEONATAL TACHYPNOEA [None]
  - PREMATURE BABY [None]
  - WEIGHT DECREASED [None]
